FAERS Safety Report 6282098-1 (Version None)
Quarter: 2009Q3

REPORT INFORMATION
  Report Type: 
  Country: None (occurrence: None)
  Receive Date: 20090724
  Receipt Date: 20090713
  Transmission Date: 20100115
  Serious: Yes (Hospitalization)
  Sender: FDA-Public Use
  Company Number: JP-ELI_LILLY_AND_COMPANY-JP200907004908

PATIENT
  Age: 76 Year
  Sex: Female

DRUGS (1)
  1. HUMALOG [Suspect]
     Route: 058
     Dates: end: 20090713

REACTIONS (1)
  - HYPERGLYCAEMIA [None]
